FAERS Safety Report 24638369 (Version 2)
Quarter: 2024Q4

REPORT INFORMATION
  Report Type: Report from Study
  Country: US (occurrence: US)
  Receive Date: 20241119
  Receipt Date: 20241127
  Transmission Date: 20250115
  Serious: No
  Sender: BAYER HEALTHCARE PHARMACEUTICALS INC.
  Company Number: US-BAYER-2024A149906

PATIENT
  Age: 41 Year
  Sex: Female
  Weight: 72.562 kg

DRUGS (7)
  1. ADEMPAS [Suspect]
     Active Substance: RIOCIGUAT
     Indication: Pulmonary arterial hypertension
     Dosage: UNK
     Dates: start: 20240628
  2. ADEMPAS [Suspect]
     Active Substance: RIOCIGUAT
     Indication: Pulmonary arterial hypertension
     Dosage: 2.0 MG, TID
     Route: 048
     Dates: start: 2024
  3. UPTRAVI [Suspect]
     Active Substance: SELEXIPAG
  4. OPSUMIT [Concomitant]
     Active Substance: MACITENTAN
  5. ALBUTEROL SULFATE [Concomitant]
     Active Substance: ALBUTEROL SULFATE
  6. FUROSEMIDE [Concomitant]
     Active Substance: FUROSEMIDE
  7. SYMBICORT [Concomitant]
     Active Substance: BUDESONIDE\FORMOTEROL FUMARATE DIHYDRATE

REACTIONS (5)
  - Headache [Recovered/Resolved]
  - Nausea [Not Recovered/Not Resolved]
  - Epistaxis [None]
  - Headache [None]
  - Inappropriate schedule of product administration [None]

NARRATIVE: CASE EVENT DATE: 20240101
